FAERS Safety Report 8802328 (Version 1)
Quarter: 2012Q4

REPORT INFORMATION
  Report Type: 
  Country: US (occurrence: US)
  Receive Date: 20120921
  Receipt Date: 20120921
  Transmission Date: 20130627
  Serious: Yes (Death, Other)
  Sender: FDA-Public Use
  Company Number: US-ABBOTT-12P-163-0982240-00

PATIENT
  Age: 71 Year
  Sex: Female

DRUGS (4)
  1. HUMIRA [Suspect]
  2. RITUXIMAB [Suspect]
  3. ETANERCEPT [Suspect]
     Dates: start: 2002, end: 2005
  4. METHOTREXATE [Suspect]
     Indication: LEUKOPENIA

REACTIONS (1)
  - Progressive multifocal leukoencephalopathy [Fatal]
